FAERS Safety Report 16008210 (Version 1)
Quarter: 2019Q1

REPORT INFORMATION
  Report Type: Spontaneous
  Country: FR (occurrence: FR)
  Receive Date: 20190226
  Receipt Date: 20190226
  Transmission Date: 20190418
  Serious: Yes (Hospitalization)
  Sender: FDA-Public Use
  Company Number: FR-ALLERGAN-1904642US

PATIENT
  Age: 33 Year
  Sex: Female

DRUGS (3)
  1. FOLLITROPIN ALFA [Suspect]
     Active Substance: FOLLITROPIN
     Indication: IN VITRO FERTILISATION
     Dosage: 150 IU, QD
     Route: 058
     Dates: start: 201808, end: 201809
  2. TRIPTORELIN PAMOATE - BP [Suspect]
     Active Substance: TRIPTORELIN PAMOATE
     Indication: IN VITRO FERTILISATION
     Dosage: 1 DF, SINGLE
     Route: 030
     Dates: start: 201808, end: 201808
  3. OVITRELLE [Suspect]
     Active Substance: CHORIOGONADOTROPIN ALFA
     Indication: IN VITRO FERTILISATION
     Dosage: 1 DF, SINGLE
     Route: 058
     Dates: start: 20180911

REACTIONS (3)
  - Ovarian hyperstimulation syndrome [Recovered/Resolved]
  - Off label use [Unknown]
  - Abdominal distension [Recovered/Resolved]

NARRATIVE: CASE EVENT DATE: 201808
